FAERS Safety Report 5708486-7 (Version None)
Quarter: 2008Q2

REPORT INFORMATION
  Report Type: 
  Country: None (occurrence: None)
  Receive Date: 20080417
  Receipt Date: 20080410
  Transmission Date: 20081010
  Serious: Yes (Death, Other)
  Sender: FDA-Public Use
  Company Number: ES-BRISTOL-MYERS SQUIBB COMPANY-14153092

PATIENT

DRUGS (1)
  1. ATAZANAVIR SULFATE [Suspect]
     Indication: HIV INFECTION

REACTIONS (4)
  - BLOOD BILIRUBIN INCREASED [None]
  - HEPATIC FAILURE [None]
  - HEPATITIS TOXIC [None]
  - TRANSAMINASES INCREASED [None]
